FAERS Safety Report 4879037-4 (Version None)
Quarter: 2005Q4

REPORT INFORMATION
  Report Type: 
  Country: None (occurrence: None)
  Receive Date: 20051209
  Receipt Date: 20050427
  Transmission Date: 20060501
  Serious: Yes (Other)
  Sender: FDA-Public Use
  Company Number: USA-2005-0018400

PATIENT
  Age: 31 Year
  Sex: Male
  Weight: 114.3 kg

DRUGS (4)
  1. OXYCONTIN [Suspect]
     Indication: PAIN
     Dosage: 80 MG, Q8H
  2. KLONOPIN [Concomitant]
  3. PERCOCET [Concomitant]
  4. VALIUM [Concomitant]

REACTIONS (4)
  - DRUG ABUSER [None]
  - HOSTILITY [None]
  - PERSONALITY CHANGE [None]
  - SEDATION [None]
